FAERS Safety Report 4589323-3 (Version None)
Quarter: 2005Q1

REPORT INFORMATION
  Report Type: 
  Country: None (occurrence: None)
  Receive Date: 20050216
  Receipt Date: 20050127
  Transmission Date: 20050727
  Serious: Yes (Death)
  Sender: FDA-Public Use
  Company Number: USA050189335

PATIENT

DRUGS (1)
  1. XIGRIS [Suspect]
     Dates: start: 20050101

REACTIONS (1)
  - HAEMORRHAGE [None]
